FAERS Safety Report 10485385 (Version 1)
Quarter: 2014Q3

REPORT INFORMATION
  Report Type: Spontaneous
  Country: CA (occurrence: CA)
  Receive Date: 20140930
  Receipt Date: 20140930
  Transmission Date: 20150326
  Serious: Yes (Other)
  Sender: FDA-Public Use
  Company Number: CA-BAXTER-2014BAX057682

PATIENT
  Age: 2 Day
  Sex: Male
  Weight: 3.05 kg

DRUGS (1)
  1. TISSEEL VH [Suspect]
     Active Substance: FIBRINOGEN HUMAN\THROMBIN HUMAN
     Indication: TRACHEO-OESOPHAGEAL FISTULA
     Route: 065

REACTIONS (6)
  - Choking [None]
  - Aspiration [Recovered/Resolved]
  - Pneumonia aspiration [None]
  - Oesophageal stenosis [Recovered/Resolved]
  - Pneumonia [Recovered/Resolved]
  - Tracheo-oesophageal fistula [Recovered/Resolved]
